FAERS Safety Report 5164032-0 (Version None)
Quarter: 2006Q4

REPORT INFORMATION
  Report Type: 
  Country: None (occurrence: None)
  Receive Date: 20061204
  Receipt Date: 20061128
  Transmission Date: 20070319
  Serious: Yes (Hospitalization)
  Sender: FDA-Public Use
  Company Number: US-BOEHRINGER INGELHEIM GMBH, GERMANY-2006-DE-06302GD

PATIENT
  Age: 66 Year
  Sex: Female

DRUGS (4)
  1. ASPIRIN [Suspect]
     Indication: OSTEOARTHRITIS
  2. ASPIRIN [Suspect]
     Indication: ANKYLOSING SPONDYLITIS
  3. DICLOFENAC SODIUM [Suspect]
     Indication: OSTEOARTHRITIS
  4. DICLOFENAC SODIUM [Suspect]
     Indication: ANKYLOSING SPONDYLITIS

REACTIONS (4)
  - ANAEMIA [None]
  - GASTROINTESTINAL HAEMORRHAGE [None]
  - INTESTINAL DIAPHRAGM DISEASE [None]
  - INTESTINAL OBSTRUCTION [None]
